FAERS Safety Report 8051911-X (Version None)
Quarter: 2012Q1

REPORT INFORMATION
  Report Type: 
  Country: None (occurrence: None)
  Receive Date: 20120118
  Receipt Date: 20120110
  Transmission Date: 20120608
  Serious: Yes (Hospitalization)
  Sender: FDA-Public Use
  Company Number: CH-JNJFOC-20120103654

PATIENT
  Age: 28 Year
  Sex: Male

DRUGS (3)
  1. TRIOFAN [Concomitant]
     Indication: VIRAL INFECTION
     Route: 065
     Dates: start: 20111125, end: 20111127
  2. REMICADE [Suspect]
     Indication: CROHN'S DISEASE
     Dosage: TEMPORARILY STOPPED
     Route: 042
     Dates: start: 20050101, end: 20111101
  3. ACETAMINOPHEN [Concomitant]
     Indication: VIRAL INFECTION
     Route: 065

REACTIONS (2)
  - TRANSIENT ISCHAEMIC ATTACK [None]
  - VASCULITIS CEREBRAL [None]
